FAERS Safety Report 19034776 (Version 1)
Quarter: 2021Q1

REPORT INFORMATION
  Report Type: Spontaneous
  Country: US (occurrence: US)
  Receive Date: 20210319
  Receipt Date: 20210319
  Transmission Date: 20210420
  Serious: Yes (Other)
  Sender: FDA-Public Use
  Company Number: US-SUN PHARMACEUTICAL INDUSTRIES LTD-2021R1-286161

PATIENT
  Sex: Female

DRUGS (5)
  1. NAB?PACLITAXEL [Concomitant]
     Active Substance: PACLITAXEL
     Indication: NEOPLASM RECURRENCE
     Dosage: 02  CYCLES
     Route: 065
     Dates: start: 2020
  2. GEMCITABINE. [Suspect]
     Active Substance: GEMCITABINE
     Dosage: 02 MORE CYCLES
     Route: 065
     Dates: start: 2020
  3. PEMBROLIZUAB [Concomitant]
     Indication: NEOPLASM RECURRENCE
     Dosage: 2 CYCLES
     Route: 065
     Dates: start: 2020
  4. CARBOPLATIN. [Concomitant]
     Active Substance: CARBOPLATIN
     Indication: NEOPLASM RECURRENCE
     Dosage: 2 CYCLES
     Route: 065
     Dates: start: 2020
  5. GEMCITABINE. [Suspect]
     Active Substance: GEMCITABINE
     Indication: NEOPLASM RECURRENCE
     Dosage: 2 CYCLES
     Route: 065
     Dates: start: 2020

REACTIONS (2)
  - Drug ineffective [Unknown]
  - Disease progression [Unknown]

NARRATIVE: CASE EVENT DATE: 2020
